FAERS Safety Report 8721285 (Version 3)
Quarter: 2013Q2

REPORT INFORMATION
  Report Type: Report from Study
  Country: JP (occurrence: JP)
  Receive Date: 20120813
  Receipt Date: 20130517
  Transmission Date: 20140414
  Serious: Yes (Other)
  Sender: FDA-Public Use
  Company Number: JP-009507513-1207JPN000638

PATIENT
  Age: 66 Year
  Sex: Male
  Weight: 63 kg

DRUGS (11)
  1. PEGINTRON [Suspect]
     Indication: CHRONIC HEPATITIS C
     Dosage: 1.5 MICROGRAM PER KILOGRAM, QW
     Route: 058
     Dates: start: 20120621, end: 20120624
  2. REBETOL [Suspect]
     Indication: CHRONIC HEPATITIS C
     Dosage: 800 MG, QD
     Route: 048
     Dates: start: 20120621, end: 20120624
  3. TELAVIC [Suspect]
     Indication: CHRONIC HEPATITIS C
     Dosage: 2250 MG, QD
     Route: 048
     Dates: start: 20120621, end: 20120624
  4. URSO [Concomitant]
     Indication: CHRONIC HEPATITIS C
     Dosage: 600 MG, QD
     Route: 048
  5. HYPOCA [Concomitant]
     Indication: HYPERTENSION
     Dosage: 10 MG, UNK
     Route: 048
  6. WARFARIN [Concomitant]
     Indication: ATRIAL FIBRILLATION
     Dosage: 3 MG, QD
     Route: 048
  7. MAINTATE [Concomitant]
     Indication: HYPERTENSION
     Dosage: 2.5 MG, QD
     Route: 048
  8. LOXOPROFEN SODIUM [Concomitant]
     Indication: PROPHYLAXIS
     Dosage: 180 MG ONCE
     Route: 048
     Dates: start: 20120621, end: 20120625
  9. LOXOPROFEN SODIUM [Concomitant]
     Indication: CONSTIPATION
     Dosage: 2.6 G, ONCE
     Route: 054
     Dates: start: 20120627, end: 20120627
  10. MUCOSTA [Concomitant]
     Indication: PROPHYLAXIS
     Dosage: 300 MG, QD
     Route: 048
     Dates: start: 20120621, end: 20120627
  11. NIZORAL [Concomitant]
     Indication: SEBORRHOEIC DERMATITIS
     Dosage: UNK UNK, QD
     Route: 061
     Dates: start: 20120626

REACTIONS (3)
  - Blood creatinine increased [Recovered/Resolved]
  - Blood uric acid increased [Recovered/Resolved]
  - Renal failure acute [Recovered/Resolved]
